FAERS Safety Report 12069968 (Version 4)
Quarter: 2017Q1

REPORT INFORMATION
  Report Type: Report from Study
  Country: US (occurrence: US)
  Receive Date: 20160211
  Receipt Date: 20170316
  Transmission Date: 20170428
  Serious: Yes (Death, Other)
  Sender: FDA-Public Use
  Company Number: US-ALEXION PHARMACEUTICALS INC-A201600630

PATIENT
  Sex: Female

DRUGS (1)
  1. SOLIRIS [Suspect]
     Active Substance: ECULIZUMAB
     Indication: PAROXYSMAL NOCTURNAL HAEMOGLOBINURIA
     Route: 042

REACTIONS (15)
  - Apparent death [Fatal]
  - Migraine [Not Recovered/Not Resolved]
  - Depression [Unknown]
  - Fatigue [Unknown]
  - Cardiac failure [Unknown]
  - Haemorrhage [Unknown]
  - Activities of daily living impaired [Unknown]
  - Dyspnoea [Unknown]
  - Seizure [Unknown]
  - Stress [Unknown]
  - Hypoxia [Unknown]
  - Syncope [Unknown]
  - Aplastic anaemia [Unknown]
  - Malaise [Unknown]
  - Memory impairment [Unknown]
